FAERS Safety Report 5750240-4 (Version None)
Quarter: 2008Q2

REPORT INFORMATION
  Report Type: 
  Country: None (occurrence: None)
  Receive Date: 20080523
  Receipt Date: 20080523
  Transmission Date: 20081010
  Serious: Yes (Other)
  Sender: FDA-Public Use
  Company Number: None

PATIENT
  Age: 71 Year
  Sex: Male
  Weight: 75.7507 kg

DRUGS (1)
  1. DIGITEK [Suspect]
     Indication: HEART RATE DECREASED
     Dosage: 0.25 DAILY PO
     Route: 048
     Dates: start: 20080301, end: 20080429

REACTIONS (1)
  - DIZZINESS [None]
